FAERS Safety Report 24585922 (Version 1)
Quarter: 2024Q4

REPORT INFORMATION
  Report Type: Spontaneous
  Country: US (occurrence: None)
  Receive Date: 20241106
  Receipt Date: 20241106
  Transmission Date: 20250115
  Serious: Yes (Other)
  Sender: Public
  Company Number: None

PATIENT
  Age: 43 Year
  Sex: Female

DRUGS (1)
  1. TEPEZZA [Suspect]
     Active Substance: TEPROTUMUMAB-TRBW

REACTIONS (5)
  - Deafness [None]
  - Ear discomfort [None]
  - Fatigue [None]
  - Abdominal discomfort [None]
  - Bladder disorder [None]

NARRATIVE: CASE EVENT DATE: 20241023
